FAERS Safety Report 9721614 (Version 1)
Quarter: 2013Q4

REPORT INFORMATION
  Report Type: Spontaneous
  Country: US (occurrence: US)
  Receive Date: 20131201
  Receipt Date: 20131201
  Transmission Date: 20140711
  Serious: No
  Sender: FDA-Public Use
  Company Number: US-ABBVIE-13P-163-1140969-00

PATIENT
  Age: 71 Year
  Sex: Male
  Weight: 110.78 kg

DRUGS (5)
  1. ANDROGEL [Suspect]
     Indication: BLOOD TESTOSTERONE DECREASED
     Dosage: 2 PUMPS/DAY
     Dates: start: 201306, end: 201308
  2. ANDROGEL [Suspect]
     Indication: BLOOD TESTOSTERONE DECREASED
     Dosage: 2 PUMPS/DAY
     Dates: start: 2013, end: 201306
  3. CLONAZAPAM [Concomitant]
     Indication: TOURETTE^S DISORDER
  4. SIMVASTATIN [Concomitant]
     Indication: PRODUCT USED FOR UNKNOWN INDICATION
  5. LOSARTAN [Concomitant]
     Indication: PRODUCT USED FOR UNKNOWN INDICATION

REACTIONS (3)
  - Asthenia [Not Recovered/Not Resolved]
  - Blood testosterone decreased [Not Recovered/Not Resolved]
  - Libido decreased [Not Recovered/Not Resolved]
